FAERS Safety Report 7115943-8 (Version None)
Quarter: 2010Q4

REPORT INFORMATION
  Report Type: 
  Country: None (occurrence: None)
  Receive Date: 20101122
  Receipt Date: 20101111
  Transmission Date: 20110411
  Serious: Yes (Hospitalization, Other)
  Sender: FDA-Public Use
  Company Number: JP-GENZYME-THYM-1002083

PATIENT
  Sex: Male
  Weight: 76 kg

DRUGS (17)
  1. THYMOGLOBULIN [Suspect]
     Indication: BONE MARROW CONDITIONING REGIMEN
     Dosage: 83 MG, ONCE
     Route: 042
     Dates: start: 20100107, end: 20100107
  2. FLUDARABINE PHOSPHATE [Concomitant]
     Indication: BONE MARROW CONDITIONING REGIMEN
     Dosage: UNK
     Dates: start: 20100111, end: 20100116
  3. BUSULFAN [Concomitant]
     Indication: BONE MARROW CONDITIONING REGIMEN
     Dosage: UNK
     Dates: start: 20100113, end: 20100114
  4. METHYLPREDNISOLONE SODIUM SUCCINATE [Concomitant]
     Indication: BONE MARROW CONDITIONING REGIMEN
     Dosage: UNK
     Dates: start: 20100117, end: 20100117
  5. TACROLIMUS [Concomitant]
     Indication: PROPHYLAXIS AGAINST GRAFT VERSUS HOST DISEASE
     Dosage: UNK
     Dates: start: 20100118, end: 20100226
  6. METHOTREXATE [Concomitant]
     Indication: PROPHYLAXIS AGAINST GRAFT VERSUS HOST DISEASE
     Dosage: UNK
     Dates: start: 20100120, end: 20100125
  7. CALCIUM FOLINATE [Concomitant]
     Indication: PROPHYLAXIS
     Dosage: UNK
     Dates: start: 20100122, end: 20100127
  8. HYDROXYZINE PAMOATE [Concomitant]
     Indication: TRANSFUSION
     Dosage: UNK
     Dates: start: 20100119, end: 20100119
  9. VALPROATE SODIUM [Concomitant]
     Indication: CONVULSION PROPHYLAXIS
     Dosage: UNK
     Dates: start: 20100112, end: 20100115
  10. CIPROFLOXACIN HYDROCHLORIDE [Concomitant]
     Indication: ANTIBIOTIC PROPHYLAXIS
     Dosage: UNK
     Dates: start: 20100111, end: 20100128
  11. ITRACONAZOLE [Concomitant]
     Indication: ANTIFUNGAL PROPHYLAXIS
     Dosage: UNK
     Dates: start: 20100111, end: 20100317
  12. ACYCLOVIR [Concomitant]
     Indication: ANTIVIRAL PROPHYLAXIS
     Dosage: UNK
     Dates: start: 20100112, end: 20100429
  13. GRANISETRON HYDROCHLORIDE [Concomitant]
     Indication: PROPHYLAXIS OF NAUSEA AND VOMITING
     Dosage: UNK
     Dates: start: 20100111, end: 20100116
  14. URSODIOL [Concomitant]
     Indication: PROPHYLAXIS
     Dosage: UNK
     Dates: start: 20100111, end: 20100317
  15. RABEPRAZOLE SODIUM [Concomitant]
     Indication: PROPHYLAXIS AGAINST GASTROINTESTINAL ULCER
     Dosage: UNK
     Dates: start: 20100125, end: 20100324
  16. LEVOFLOXACIN [Concomitant]
     Indication: ANTIBIOTIC PROPHYLAXIS
     Dosage: UNK
     Dates: start: 20100218, end: 20100317
  17. LANSOPRAZOLE [Concomitant]
     Indication: PROPHYLAXIS AGAINST GASTROINTESTINAL ULCER
     Dosage: UNK
     Dates: start: 20100325, end: 20100429

REACTIONS (8)
  - DECREASED APPETITE [None]
  - ENGRAFT FAILURE [None]
  - FEBRILE NEUTROPENIA [None]
  - HYPOMAGNESAEMIA [None]
  - NEUTROPENIA [None]
  - PYREXIA [None]
  - STOMATITIS [None]
  - WEIGHT INCREASED [None]
